FAERS Safety Report 5416264-1 (Version None)
Quarter: 2007Q3

REPORT INFORMATION
  Report Type: 
  Country: None (occurrence: None)
  Receive Date: 20070718
  Receipt Date: 20070221
  Transmission Date: 20080115
  Serious: Yes (Other)
  Sender: FDA-Public Use
  Company Number: 2007014055

PATIENT
  Age: 53 Year
  Sex: Female
  Weight: 68 kg

DRUGS (1)
  1. CELEBREX [Suspect]
     Indication: KNEE OPERATION

REACTIONS (1)
  - CEREBROVASCULAR ACCIDENT [None]
